FAERS Safety Report 9225380 (Version 1)
Quarter: 2013Q2

REPORT INFORMATION
  Report Type: Spontaneous
  Country: US (occurrence: US)
  Receive Date: 20130411
  Receipt Date: 20130411
  Transmission Date: 20140414
  Serious: Yes (Hospitalization)
  Sender: FDA-Public Use
  Company Number: US-ELI_LILLY_AND_COMPANY-US201304003079

PATIENT
  Age: 59 Year
  Sex: Male

DRUGS (21)
  1. ADCIRCA [Suspect]
     Indication: COR PULMONALE CHRONIC
     Dosage: 40 MG, QD
     Dates: start: 20130316
  2. ASPIRIN [Concomitant]
     Dosage: 81 MG, UNK
  3. PROVENTIL                               /USA/ [Concomitant]
     Route: 055
  4. FLEXERIL [Concomitant]
     Dosage: 10 MG, UNK
  5. VITAMIN C [Concomitant]
     Dosage: 1000 MG, UNK
  6. CLARITIN [Concomitant]
     Dosage: 10 MG, UNK
  7. MULTIVITAMIN [Concomitant]
  8. COZAAR [Concomitant]
     Dosage: 50 MG, UNK
  9. DOCUSATE SODIUM [Concomitant]
     Dosage: 240 MG, UNK
  10. VITAMIN D3 [Concomitant]
     Dosage: 400 U, UNK
  11. KLOR-CON M10 [Concomitant]
  12. TENORMIN [Concomitant]
     Dosage: 100 MG, UNK
  13. LASIX [Concomitant]
     Dosage: 20 MG, UNK
  14. METFORMIN [Concomitant]
     Dosage: 1000 MG, UNK
  15. COMBIVENT [Concomitant]
     Route: 055
  16. NORCO [Concomitant]
  17. LANTUS [Concomitant]
     Dosage: 100 U, UNK
  18. FLONASE [Concomitant]
     Route: 045
  19. VALIUM [Concomitant]
     Dosage: 2 MG, UNK
  20. HUMALOG [Concomitant]
     Dosage: 100 U, UNK
  21. VENTOLIN                                /SCH/ [Concomitant]
     Dosage: 90 UG, UNK
     Route: 055

REACTIONS (1)
  - Skin ulcer [Unknown]
